FAERS Safety Report 6772994-0 (Version None)
Quarter: 2010Q2

REPORT INFORMATION
  Report Type: 
  Country: None (occurrence: None)
  Receive Date: 20100616
  Receipt Date: 20100604
  Transmission Date: 20101027
  Serious: Yes (Other)
  Sender: FDA-Public Use
  Company Number: US-PFIZER INC-2010070738

PATIENT
  Sex: Female
  Weight: 67.12 kg

DRUGS (8)
  1. GEODON [Suspect]
     Indication: MOOD SWINGS
     Dosage: UNK
     Route: 048
     Dates: start: 20050801
  2. ZOLOFT [Suspect]
     Indication: DEPRESSION
     Dosage: UNK
  3. LITHIUM [Suspect]
     Dosage: UNK
  4. KLONOPIN [Suspect]
     Indication: ANXIETY
     Dosage: UNK
     Dates: start: 19840101
  5. EFFEXOR [Suspect]
     Indication: DEPRESSION
     Dosage: UNK
     Route: 048
     Dates: start: 19960101
  6. LEXAPRO [Suspect]
     Indication: DEPRESSION
     Dosage: UNK
  7. SEROQUEL [Suspect]
     Dosage: UNK
  8. PAXIL [Suspect]
     Indication: DEPRESSION
     Dosage: UNK

REACTIONS (3)
  - ATTENTION DEFICIT/HYPERACTIVITY DISORDER [None]
  - BLOOD PRESSURE DECREASED [None]
  - BLOOD PRESSURE FLUCTUATION [None]
